FAERS Safety Report 21330049 (Version 1)
Quarter: 2022Q3

REPORT INFORMATION
  Report Type: Spontaneous
  Country: US (occurrence: US)
  Receive Date: 20220913
  Receipt Date: 20220913
  Transmission Date: 20221027
  Serious: No
  Sender: FDA-Public Use
  Company Number: US-PFIZER INC-PV202200053448

PATIENT
  Age: 53 Year
  Sex: Female

DRUGS (2)
  1. CAMPTOSAR [Suspect]
     Active Substance: IRINOTECAN HYDROCHLORIDE
     Indication: Pancreatic carcinoma
     Dosage: UNK, CYCLIC (40/300MG FREQUENCY TREATMENT EVERY 14 DAYS)
  2. CAMPTOSAR [Suspect]
     Active Substance: IRINOTECAN HYDROCHLORIDE
     Dosage: 300 MG, CYCLIC (FREQUENCY OF TREATMENT 14 DAYS)

REACTIONS (2)
  - Off label use [Unknown]
  - Loss of personal independence in daily activities [Unknown]
